APPROVED DRUG PRODUCT: BENZPHETAMINE HYDROCHLORIDE
Active Ingredient: BENZPHETAMINE HYDROCHLORIDE
Strength: 25MG
Dosage Form/Route: TABLET;ORAL
Application: A090473 | Product #001
Applicant: CHARTWELL SCHEDULED LLC
Approved: Sep 15, 2010 | RLD: No | RS: No | Type: RX